FAERS Safety Report 9925323 (Version 2)
Quarter: 2014Q1

REPORT INFORMATION
  Report Type: Spontaneous
  Country: US (occurrence: US)
  Receive Date: 20140226
  Receipt Date: 20140305
  Transmission Date: 20141002
  Serious: No
  Sender: FDA-Public Use
  Company Number: US-009507513-1402USA011846

PATIENT
  Age: 65 Year
  Sex: Female
  Weight: 74.83 kg

DRUGS (3)
  1. OXYTROL FOR WOMEN [Suspect]
     Indication: HYPERTONIC BLADDER
     Dosage: 1 DF, ONCE
     Route: 062
     Dates: start: 201401
  2. OXYTROL FOR WOMEN [Suspect]
     Indication: NOCTURIA
  3. CALCIUM (UNSPECIFIED) [Concomitant]
     Indication: PRODUCT USED FOR UNKNOWN INDICATION
     Dosage: UNK, UNKNOWN

REACTIONS (2)
  - Insomnia [Recovered/Resolved]
  - Drug ineffective [Unknown]
